FAERS Safety Report 8355070-5 (Version None)
Quarter: 2012Q2

REPORT INFORMATION
  Report Type: 
  Country: None (occurrence: None)
  Receive Date: 20120511
  Receipt Date: 20120501
  Transmission Date: 20120825
  Serious: Yes (Other)
  Sender: FDA-Public Use
  Company Number: JP-ELI_LILLY_AND_COMPANY-JP201204004037

PATIENT
  Age: 63 Year
  Sex: Female

DRUGS (4)
  1. ALPRAZOLAM [Concomitant]
     Dosage: UNK
     Route: 048
  2. GEMZAR [Suspect]
     Indication: BILE DUCT CANCER
     Dosage: 1000 MG/M2, OTHER
     Route: 042
     Dates: start: 20111028, end: 20120413
  3. LIPITOR [Concomitant]
     Dosage: 10 MG, QOD
     Route: 048
  4. DEPAS [Concomitant]
     Dosage: UNK
     Route: 048

REACTIONS (2)
  - CHOLANGITIS [None]
  - HEPATIC FUNCTION ABNORMAL [None]
